FAERS Safety Report 7264053-8 (Version None)
Quarter: 2011Q1

REPORT INFORMATION
  Report Type: 
  Country: None (occurrence: None)
  Receive Date: 20110130
  Receipt Date: 20101217
  Transmission Date: 20110831
  Serious: No
  Sender: FDA-Public Use
  Company Number: US-ABBOTT-10P-163-0692473-00

PATIENT
  Age: 53 Year
  Sex: Female

DRUGS (4)
  1. CELEBREX [Concomitant]
     Indication: RHEUMATOID ARTHRITIS
  2. MTX [Concomitant]
     Indication: RHEUMATOID ARTHRITIS
  3. ULTRAM [Concomitant]
     Indication: RHEUMATOID ARTHRITIS
  4. HUMIRA [Suspect]
     Indication: RHEUMATOID ARTHRITIS
     Dates: start: 20071201

REACTIONS (1)
  - COUGH [None]
